FAERS Safety Report 8176298-3 (Version None)
Quarter: 2012Q1

REPORT INFORMATION
  Report Type: 
  Country: None (occurrence: None)
  Receive Date: 20120301
  Receipt Date: 20120223
  Transmission Date: 20120608
  Serious: Yes (Death)
  Sender: FDA-Public Use
  Company Number: ES-COVIDIEN/TYCO HEALTHCARE/MALLINCKRODT-T201200634

PATIENT
  Age: 68 Year

DRUGS (3)
  1. OPTIRAY 160 [Suspect]
     Indication: ANGIOGRAM
     Dosage: 80 ML, SINGLE
     Route: 042
  2. ALTEPLASE [Suspect]
     Indication: CEREBRAL ARTERY OCCLUSION
     Route: 042
  3. OPTIRAY 160 [Suspect]
     Indication: COMPUTERISED TOMOGRAM
     Dosage: 40 ML, SINGLE

REACTIONS (1)
  - CEREBRAL HAEMATOMA [None]
